FAERS Safety Report 20484825 (Version 2)
Quarter: 2022Q1

REPORT INFORMATION
  Report Type: Report from Study
  Country: BR (occurrence: BR)
  Receive Date: 20220217
  Receipt Date: 20220302
  Transmission Date: 20220423
  Serious: Yes (Hospitalization)
  Sender: FDA-Public Use
  Company Number: BR-JNJFOC-20220218917

PATIENT
  Age: 62 Year
  Sex: Male
  Weight: 139 kg

DRUGS (1)
  1. SPRAVATO [Suspect]
     Active Substance: ESKETAMINE
     Indication: Major depression
     Dates: start: 20211216

REACTIONS (1)
  - Hospitalisation [Unknown]
